FAERS Safety Report 19660038 (Version 1)
Quarter: 2021Q3

REPORT INFORMATION
  Report Type: Spontaneous
  Country: NL (occurrence: NL)
  Receive Date: 20210805
  Receipt Date: 20210805
  Transmission Date: 20211014
  Serious: Yes (Other)
  Sender: FDA-Public Use
  Company Number: NL-ACCORD-234361

PATIENT
  Age: 33 Year
  Sex: Female
  Weight: 65 kg

DRUGS (6)
  1. FLUOXETINE [Concomitant]
     Active Substance: FLUOXETINE HYDROCHLORIDE
     Dosage: TABLET, 20 MG (MILLIGRAM)
  2. DOXAZOSIN [Suspect]
     Active Substance: DOXAZOSIN MESYLATE
     Indication: POST-TRAUMATIC STRESS DISORDER
     Dosage: 1X DAILY 1
     Dates: start: 20210709, end: 20210710
  3. MICROGYNON [Concomitant]
     Active Substance: ETHINYL ESTRADIOL\LEVONORGESTREL ACETATE
     Dosage: TABLET, 20/100 MICROGRAM
  4. OXAZEPAM. [Concomitant]
     Active Substance: OXAZEPAM
     Dosage: 10 MG AS NEEDED (LAST USE 4 JULY 2021)
  5. OMEPRAZOLE. [Concomitant]
     Active Substance: OMEPRAZOLE
     Dosage: 1X DAILY 40 MG
  6. VERAPAMIL [Concomitant]
     Active Substance: VERAPAMIL HYDROCHLORIDE
     Dosage: 1X DAILY 60 MG (SUSTAINED RELEASE TABLET)

REACTIONS (7)
  - Tachycardia [Recovering/Resolving]
  - Tremor [Unknown]
  - Presyncope [Recovering/Resolving]
  - Arrhythmia [Recovering/Resolving]
  - Dizziness [Unknown]
  - Feeling hot [Unknown]
  - Nausea [Unknown]

NARRATIVE: CASE EVENT DATE: 20210710
